FAERS Safety Report 6977603-3 (Version None)
Quarter: 2010Q3

REPORT INFORMATION
  Report Type: 
  Country: None (occurrence: None)
  Receive Date: 20100913
  Receipt Date: 20100901
  Transmission Date: 20110219
  Serious: Yes (Hospitalization)
  Sender: FDA-Public Use
  Company Number: US-BIOGENIDEC-136066

PATIENT
  Age: 47 Year
  Sex: Female
  Weight: 54 kg

DRUGS (10)
  1. AVONEX [Suspect]
     Indication: MULTIPLE SCLEROSIS
     Route: 030
     Dates: start: 19960901, end: 20090620
  2. PERSANTINE [Concomitant]
     Indication: THROMBOSIS
     Dates: start: 19900101
  3. TENORMIN [Concomitant]
     Indication: MITRAL VALVE PROLAPSE
     Dates: start: 19910101
  4. DEPAKOTE [Concomitant]
     Indication: PAIN
     Dates: start: 19990201
  5. DEPAKOTE [Concomitant]
     Indication: MUSCLE SPASTICITY
     Dates: start: 19990201
  6. BACLOFEN [Concomitant]
     Indication: MUSCLE SPASTICITY
     Dates: start: 19910101
  7. DETROL [Concomitant]
     Indication: NEUROGENIC BLADDER
     Dates: start: 19980501
  8. MIACALCIN [Concomitant]
     Indication: OSTEOPENIA
     Dates: start: 19990901
  9. PEPCID [Concomitant]
     Indication: GASTRIC DISORDER
     Dates: start: 20000301
  10. AMBIEN [Concomitant]
     Indication: SLEEP DISORDER
     Dates: start: 20000301

REACTIONS (5)
  - BRONCHOSPASM [None]
  - HEPATIC CYST [None]
  - LARYNGOSPASM [None]
  - MENINGIOMA [None]
  - MULTIPLE SCLEROSIS RELAPSE [None]
